FAERS Safety Report 4869226-7 (Version None)
Quarter: 2005Q4

REPORT INFORMATION
  Report Type: 
  Country: None (occurrence: None)
  Receive Date: 20051230
  Receipt Date: 20051128
  Transmission Date: 20060501
  Serious: Yes (Other)
  Sender: FDA-Public Use
  Company Number: PHEH2005US12969

PATIENT
  Age: 67 Year
  Sex: Female
  Weight: 78.458 kg

DRUGS (9)
  1. SANDOSTATIN LAR [Suspect]
     Indication: CARCINOID SYNDROME
     Dosage: 30 MG, QMO
     Route: 030
     Dates: start: 20010101
  2. PRANDIN [Concomitant]
     Indication: DIABETES MELLITUS
     Dosage: 2 MG WITH LUNCH AND SUPPER
     Route: 048
  3. FOLIC ACID [Concomitant]
     Dosage: 5 MG, QD
     Route: 048
  4. B12 [Concomitant]
     Dosage: UNK, QW3
     Route: 030
  5. DILTIAZEM HCL [Concomitant]
     Dosage: 240 MG, QD
     Route: 048
  6. DIOVAN [Concomitant]
     Dosage: 80 MG, BID
  7. LIPITOR [Concomitant]
     Dosage: 10 MG, QD
     Route: 048
  8. LASIX [Concomitant]
     Dosage: 80 MG, QD
     Route: 048
  9. ATENOLOL [Concomitant]
     Dosage: 50 MG, QD
     Route: 048

REACTIONS (4)
  - COMPUTERISED TOMOGRAM ABNORMAL [None]
  - HEMIANOPIA [None]
  - NUCLEAR MAGNETIC RESONANCE IMAGING ABNORMAL [None]
  - VISUAL FIELD DEFECT [None]
